FAERS Safety Report 22242877 (Version 2)
Quarter: 2023Q2

REPORT INFORMATION
  Report Type: Spontaneous
  Country: TR (occurrence: TR)
  Receive Date: 20230424
  Receipt Date: 20230519
  Transmission Date: 20230722
  Serious: Yes (Hospitalization)
  Sender: FDA-Public Use
  Company Number: TR-OCTA-ALB02723

PATIENT
  Sex: Male
  Weight: 88 kg

DRUGS (2)
  1. ALBUMIN HUMAN [Suspect]
     Active Substance: ALBUMIN HUMAN
     Indication: Hypoalbuminaemia
     Route: 042
     Dates: start: 20230323, end: 20230323
  2. ISOTONIC SOLUTION [Concomitant]
     Indication: Product used for unknown indication
     Route: 042

REACTIONS (4)
  - Hallucination [Recovered/Resolved]
  - Respiratory disorder [Recovered/Resolved]
  - Oxygen saturation decreased [Recovered/Resolved]
  - Hypotension [Recovered/Resolved]

NARRATIVE: CASE EVENT DATE: 20230323
